FAERS Safety Report 9808256 (Version 2)
Quarter: 2014Q1

REPORT INFORMATION
  Report Type: Report from Study
  Country: US (occurrence: US)
  Receive Date: 20140110
  Receipt Date: 20140120
  Transmission Date: 20141002
  Serious: Yes (Hospitalization, Other)
  Sender: FDA-Public Use
  Company Number: US-TAKEDA-2014TUS000123

PATIENT
  Sex: 0

DRUGS (13)
  1. BLINDED PIOGLITAZONE [Suspect]
     Indication: CARDIOVASCULAR EVENT PROPHYLAXIS
     Dosage: 15 MG, QD
     Route: 048
     Dates: start: 20100729, end: 20100824
  2. BLINDED PLACEBO [Suspect]
     Indication: CARDIOVASCULAR EVENT PROPHYLAXIS
     Dosage: 15 MG, QD
     Route: 048
     Dates: start: 20100729, end: 20100824
  3. BLINDED PIOGLITAZONE HYDROCHLORIDE [Suspect]
     Dosage: 30 MG, QD
     Route: 048
     Dates: start: 20100825, end: 20100923
  4. BLINDED PLACEBO [Suspect]
     Dosage: 30 MG, QD
     Route: 048
     Dates: start: 20100825, end: 20100923
  5. BLINDED PIOGLITAZONE HYDROCHLORIDE [Suspect]
     Dosage: 45 MG, QD
     Route: 048
     Dates: start: 20100924, end: 20131001
  6. BLINDED PLACEBO [Suspect]
     Dosage: 45 MG, QD
     Route: 048
     Dates: start: 20100924, end: 20131001
  7. ASA [Concomitant]
     Dosage: 325 MG, QD
     Route: 048
  8. AMLODIPINE [Concomitant]
     Dosage: 5 MG, QD
     Route: 048
  9. CRESTOR [Concomitant]
     Dosage: 40 MG, QD
     Route: 048
  10. DEPAKOTE [Concomitant]
     Dosage: 1000 MG, BID
     Route: 048
  11. LISINOPRIL [Concomitant]
     Dosage: 20 MG, QD
     Route: 048
  12. LORAZEPAM [Concomitant]
     Dosage: 1 MG, PRN
     Route: 048
  13. CARBAMAZEPINE [Concomitant]
     Dosage: 200 MG, BID
     Route: 048

REACTIONS (1)
  - Bladder transitional cell carcinoma [Recovering/Resolving]
